FAERS Safety Report 10102664 (Version 2)
Quarter: 2014Q2

REPORT INFORMATION
  Report Type: Report from Study
  Country: US (occurrence: US)
  Receive Date: 20140424
  Receipt Date: 20140424
  Transmission Date: 20141212
  Serious: Yes (Hospitalization)
  Sender: FDA-Public Use
  Company Number: US-TMC-CABO-14004182

PATIENT
  Sex: Male

DRUGS (6)
  1. CABOZANTINIB [Suspect]
     Indication: LUNG NEOPLASM MALIGNANT
     Dosage: 140 MG, QD
     Route: 048
     Dates: start: 20140325, end: 20140408
  2. CABOZANTINIB [Suspect]
     Dosage: 120 MG, QD
     Route: 048
     Dates: start: 20140409
  3. LOVENOX [Concomitant]
  4. PREDNISONE [Concomitant]
  5. FLOMAX [Concomitant]
  6. CALCIUM [Concomitant]

REACTIONS (9)
  - Oedema peripheral [Unknown]
  - Haematoma [Unknown]
  - Acne [Unknown]
  - Salivary hypersecretion [Unknown]
  - Decreased appetite [Unknown]
  - Constipation [Unknown]
  - Fatigue [Recovering/Resolving]
  - Nausea [Recovering/Resolving]
  - Off label use [Unknown]
